FAERS Safety Report 11349877 (Version 3)
Quarter: 2015Q4

REPORT INFORMATION
  Report Type: Spontaneous
  Country: ES (occurrence: ES)
  Receive Date: 20150807
  Receipt Date: 20151021
  Transmission Date: 20160304
  Serious: Yes (Other)
  Sender: FDA-Public Use
  Company Number: ES-JNJFOC-20150722231

PATIENT
  Age: 37 Year
  Sex: Female

DRUGS (2)
  1. FUNGAREST [Suspect]
     Active Substance: KETOCONAZOLE
     Indication: CUSHING^S SYNDROME
     Route: 048
  2. FUNGAREST [Suspect]
     Active Substance: KETOCONAZOLE
     Indication: CUSHING^S SYNDROME
     Route: 048

REACTIONS (16)
  - Neuropathy peripheral [Recovering/Resolving]
  - Pruritus generalised [Unknown]
  - Blood uric acid decreased [Unknown]
  - Alopecia [Unknown]
  - Menstrual disorder [Unknown]
  - Polymenorrhoea [Unknown]
  - Dyspepsia [Unknown]
  - Balance disorder [Unknown]
  - Off label use [Unknown]
  - Vestibular disorder [Not Recovered/Not Resolved]
  - Dizziness postural [Recovering/Resolving]
  - Hirsutism [Unknown]
  - Skin exfoliation [Unknown]
  - Rash [Unknown]
  - Chapped lips [Unknown]
  - Paronychia [Unknown]

NARRATIVE: CASE EVENT DATE: 201410
